FAERS Safety Report 8285979-2 (Version None)
Quarter: 2012Q2

REPORT INFORMATION
  Report Type: 
  Country: None (occurrence: None)
  Receive Date: 20120416
  Receipt Date: 20120411
  Transmission Date: 20120825
  Serious: Yes (Other)
  Sender: FDA-Public Use
  Company Number: US-AMGEN-USASP2012022802

PATIENT
  Sex: Female

DRUGS (6)
  1. ATENOLOL [Concomitant]
  2. PREDNISONE [Concomitant]
  3. PRILOSEC [Concomitant]
  4. ASACOL [Concomitant]
  5. CRESTOR [Concomitant]
  6. PROLIA [Suspect]
     Indication: OSTEOPOROSIS POSTMENOPAUSAL
     Dates: start: 20110101

REACTIONS (2)
  - MONOPLEGIA [None]
  - INTERVERTEBRAL DISC PROTRUSION [None]
